FAERS Safety Report 5444476-X (Version None)
Quarter: 2007Q3

REPORT INFORMATION
  Report Type: 
  Country: None (occurrence: None)
  Receive Date: 20070831
  Receipt Date: 20070821
  Transmission Date: 20080115
  Serious: Yes (Other)
  Sender: FDA-Public Use
  Company Number: 2007329468

PATIENT
  Age: 43 Year
  Sex: Female
  Weight: 63.5 kg

DRUGS (3)
  1. BENADRYL [Suspect]
     Indication: ARTHROPOD BITE
     Dosage: 50 MG (50 MG), INTRAVENOUS
     Route: 042
     Dates: start: 20070814, end: 20070814
  2. DIPHENHYDRAMINE HCL [Suspect]
     Indication: ARTHROPOD BITE
     Dosage: 4 TEASPOONFUL (12.5 MG PER TEASPOON), ORAL
     Route: 048
     Dates: start: 20070814, end: 20070814
  3. AMERGE [Concomitant]

REACTIONS (11)
  - AMNESIA [None]
  - ASTHENIA [None]
  - BLOOD PRESSURE INCREASED [None]
  - CHEST DISCOMFORT [None]
  - COORDINATION ABNORMAL [None]
  - DIZZINESS [None]
  - MENTAL IMPAIRMENT [None]
  - MUSCULAR WEAKNESS [None]
  - NAUSEA [None]
  - PARKINSONIAN GAIT [None]
  - TACHYCARDIA [None]
